FAERS Safety Report 5084619-3 (Version None)
Quarter: 2006Q3

REPORT INFORMATION
  Report Type: 
  Country: None (occurrence: None)
  Receive Date: 20060821
  Receipt Date: 20060807
  Transmission Date: 20061208
  Serious: Yes (Hospitalization)
  Sender: FDA-Public Use
  Company Number: PHBS2006GB11948

PATIENT
  Age: 32 Year
  Sex: Female

DRUGS (3)
  1. METOPROLOL [Suspect]
  2. DIURETICS [Concomitant]
  3. INOTROPES [Concomitant]

REACTIONS (5)
  - ADRENALECTOMY [None]
  - ATRIAL FIBRILLATION [None]
  - CARDIAC FAILURE [None]
  - CONDITION AGGRAVATED [None]
  - PHAEOCHROMOCYTOMA [None]
